FAERS Safety Report 15396081 (Version 1)
Quarter: 2018Q3

REPORT INFORMATION
  Report Type: Spontaneous
  Country: US (occurrence: US)
  Receive Date: 20180918
  Receipt Date: 20180918
  Transmission Date: 20181010
  Serious: No
  Sender: FDA-Public Use
  Company Number: US-ASTRAZENECA-2018SF06431

PATIENT
  Age: 13627 Day
  Sex: Female
  Weight: 68 kg

DRUGS (9)
  1. FASLODEX [Suspect]
     Active Substance: FULVESTRANT
     Indication: BREAST CANCER METASTATIC
     Dosage: EVERY 2 WEEKS FOR THE FIRST THREE INJECTIONS THEN MONTHLY AFTER THAT
     Route: 030
     Dates: start: 20180814
  2. LASIX [Concomitant]
     Active Substance: FUROSEMIDE
     Indication: PRE-ECLAMPSIA
     Dosage: 40.0MG AS REQUIRED
     Route: 048
     Dates: start: 201704
  3. VITAMINS NOS [Concomitant]
     Active Substance: VITAMINS
     Dosage: DAILY
     Route: 048
  4. ELIGARD [Concomitant]
     Active Substance: LEUPROLIDE ACETATE
     Indication: OVARIAN DISORDER
     Dosage: 5MG OR 2.5MG, MONTHLY
     Route: 030
     Dates: start: 2015
  5. LASIX [Concomitant]
     Active Substance: FUROSEMIDE
     Indication: PLEURAL EFFUSION
     Dosage: 40.0MG AS REQUIRED
     Route: 048
     Dates: start: 201704
  6. VITAMIN D [Concomitant]
     Active Substance: CHOLECALCIFEROL
  7. VITAMIN B COMPLEX [Concomitant]
     Active Substance: CYANOCOBALAMIN\DEXPANTHENOL\NIACINAMIDE\PYRIDOXINE HYDROCHLORIDE\RIBOFLAVIN 5^-PHOSPHATE SODIUM\THIAMINE HYDROCHLORIDE\VITAMIN B COMPLEX
     Dosage: DAILY
     Route: 048
  8. VITAMINS NOS [Concomitant]
     Active Substance: VITAMINS
  9. PROBIOTIC [Concomitant]
     Active Substance: PROBIOTICS NOS
     Indication: ABDOMINAL DISCOMFORT
     Dosage: DAILY
     Route: 048

REACTIONS (7)
  - Lymphoedema [Not Recovered/Not Resolved]
  - Diarrhoea [Recovered/Resolved]
  - Headache [Recovering/Resolving]
  - Arthralgia [Recovered/Resolved]
  - Musculoskeletal discomfort [Unknown]
  - Paraesthesia oral [Recovered/Resolved]
  - Fatigue [Recovering/Resolving]

NARRATIVE: CASE EVENT DATE: 20180814
